FAERS Safety Report 6014091-8 (Version None)
Quarter: 2008Q4

REPORT INFORMATION
  Report Type: 
  Country: None (occurrence: None)
  Receive Date: 20081219
  Receipt Date: 20071204
  Transmission Date: 20090506
  Serious: No
  Sender: FDA-Public Use
  Company Number: A0697270A

PATIENT
  Age: 50 Year
  Sex: Male

DRUGS (3)
  1. AVODART [Suspect]
     Dosage: .5MG PER DAY
     Route: 048
     Dates: start: 20050901, end: 20071112
  2. ATENOLOL [Concomitant]
  3. PRILOSEC [Concomitant]

REACTIONS (3)
  - ALOPECIA [None]
  - RASH [None]
  - URTICARIA [None]
